FAERS Safety Report 9963950 (Version 1)
Quarter: 2014Q1

REPORT INFORMATION
  Report Type: Spontaneous
  Country: CA (occurrence: CA)
  Receive Date: 20140305
  Receipt Date: 20140305
  Transmission Date: 20141002
  Serious: Yes (Other)
  Sender: FDA-Public Use
  Company Number: CA-AMGEN-CANSP2014014668

PATIENT
  Age: 77 Year
  Sex: Male

DRUGS (8)
  1. ENBREL [Suspect]
     Indication: RHEUMATOID ARTHRITIS
     Dosage: 50 MG, UNK
     Route: 065
     Dates: start: 20070109
  2. METHOTREXATE [Concomitant]
     Dosage: UNK
  3. FOLIC ACID [Concomitant]
     Dosage: 5 MG, 6 DAYS A WEEKS
  4. PREVACID [Concomitant]
     Dosage: 30 MG, DAILY
  5. CRESTOR [Concomitant]
     Dosage: 40 MG, DAILY
  6. RAMIPRIL [Concomitant]
     Dosage: 2.5 MG, BID
  7. AGGRENOX [Concomitant]
     Dosage: 25 MG, BID
  8. VITAMIN D                          /00107901/ [Concomitant]
     Dosage: UNK

REACTIONS (4)
  - Carotid artery thrombosis [Recovered/Resolved]
  - Cataract [Recovered/Resolved]
  - Rheumatoid arthritis [Recovered/Resolved]
  - Post procedural infection [Recovered/Resolved]
